FAERS Safety Report 8456608-X (Version None)
Quarter: 2012Q2

REPORT INFORMATION
  Report Type: 
  Country: None (occurrence: None)
  Receive Date: 20120621
  Receipt Date: 20120606
  Transmission Date: 20120825
  Serious: Yes (Other)
  Sender: FDA-Public Use
  Company Number: GB-ROCHE-1080514

PATIENT
  Age: 62 Year
  Sex: Female

DRUGS (2)
  1. MABTHERA [Suspect]
     Indication: RHEUMATOID ARTHRITIS
     Route: 042
  2. MYCOPHENOLATE MOFETIL [Concomitant]
     Indication: RHEUMATOID ARTHRITIS

REACTIONS (3)
  - NEUTROPENIC SEPSIS [None]
  - PNEUMONIA [None]
  - NEUTROPENIA [None]
